FAERS Safety Report 14695331 (Version 1)
Quarter: 2018Q1

REPORT INFORMATION
  Report Type: Spontaneous
  Country: US (occurrence: US)
  Receive Date: 20180327
  Receipt Date: 20180327
  Transmission Date: 20180509
  Serious: No
  Sender: FDA-Public Use
  Company Number: None

PATIENT
  Age: 41 Year
  Sex: Male

DRUGS (1)
  1. HUMIRA [Suspect]
     Active Substance: ADALIMUMAB
     Indication: CROHN^S DISEASE
     Route: 058
     Dates: start: 20180322, end: 20180322

REACTIONS (4)
  - Pruritus [None]
  - Hypersensitivity [None]
  - Oropharyngeal pain [None]
  - Dysphagia [None]

NARRATIVE: CASE EVENT DATE: 20180322
